FAERS Safety Report 9029813 (Version 2)
Quarter: 2013Q1

REPORT INFORMATION
  Report Type: Spontaneous
  Country: US (occurrence: US)
  Receive Date: 20130124
  Receipt Date: 20130131
  Transmission Date: 20140127
  Serious: Yes (Other)
  Sender: FDA-Public Use
  Company Number: CHPA2013US001362

PATIENT
  Age: 88 Year
  Sex: Male

DRUGS (1)
  1. VOLTAREN GEL [Suspect]
     Indication: OSTEOARTHRITIS
     Dosage: 4 G, TID
     Route: 061
     Dates: start: 201212, end: 201212

REACTIONS (2)
  - Cardiac flutter [Recovered/Resolved]
  - Underdose [Unknown]
